FAERS Safety Report 9231422 (Version 2)
Quarter: 2014Q1

REPORT INFORMATION
  Report Type: Spontaneous
  Country: FR (occurrence: FR)
  Receive Date: 20130415
  Receipt Date: 20140224
  Transmission Date: 20141002
  Serious: Yes (Hospitalization)
  Sender: FDA-Public Use
  Company Number: PHHY2013FR035651

PATIENT
  Age: 49 Year
  Sex: Female

DRUGS (9)
  1. LEPONEX [Suspect]
     Dosage: 400 MG, QD
     Dates: start: 201207
  2. LEPONEX [Suspect]
     Dosage: 300 MG, QD
     Dates: start: 201209, end: 20130226
  3. LOXAPAC [Concomitant]
     Dosage: 300 MG, QD
     Route: 048
  4. SERESTA [Concomitant]
     Dosage: 0.5 DF, QD
     Route: 048
  5. FORLAX [Concomitant]
     Dosage: UNK
  6. PRAVASTATIN [Concomitant]
     Dosage: UNK
  7. IVABRADINE [Concomitant]
     Dosage: UNK
  8. CLINUTREN [Concomitant]
     Dosage: UNK
  9. NICOPATCH [Concomitant]
     Dosage: UNK

REACTIONS (2)
  - Cardiac failure [Recovered/Resolved with Sequelae]
  - Cardiomyopathy [Recovered/Resolved with Sequelae]
